FAERS Safety Report 14650272 (Version 2)
Quarter: 2018Q2

REPORT INFORMATION
  Report Type: Spontaneous
  Country: DE (occurrence: DE)
  Receive Date: 20180316
  Receipt Date: 20180507
  Transmission Date: 20180711
  Serious: Yes (Hospitalization, Other)
  Sender: FDA-Public Use
  Company Number: DE-JNJFOC-20180123077

PATIENT
  Age: 43 Year
  Sex: Female
  Weight: 94.5 kg

DRUGS (6)
  1. XEPLION [Suspect]
     Active Substance: PALIPERIDONE PALMITATE
     Indication: SCHIZOAFFECTIVE DISORDER
     Route: 030
     Dates: start: 20171012, end: 20171124
  2. L THYROXINE [Concomitant]
     Active Substance: LEVOTHYROXINE SODIUM
     Route: 065
  3. PROCORALAN [Concomitant]
     Active Substance: IVABRADINE
     Route: 065
  4. LITHIUM. [Concomitant]
     Active Substance: LITHIUM
     Indication: SCHIZOAFFECTIVE DISORDER
     Route: 065
  5. XEPLION [Suspect]
     Active Substance: PALIPERIDONE PALMITATE
     Indication: SCHIZOAFFECTIVE DISORDER
     Route: 030
     Dates: start: 201408, end: 201710
  6. AMPHO MORONAL [Interacting]
     Active Substance: AMPHOTERICIN B
     Indication: ORAL CANDIDIASIS
     Route: 065
     Dates: start: 20170930, end: 20171231

REACTIONS (6)
  - Psoriasis [Recovered/Resolved]
  - Drug interaction [Recovered/Resolved]
  - Drug level increased [Recovered/Resolved]
  - Drug dose omission [Unknown]
  - Weight decreased [Unknown]
  - Oral candidiasis [Recovered/Resolved]

NARRATIVE: CASE EVENT DATE: 20170915
